FAERS Safety Report 4569099-6 (Version None)
Quarter: 2005Q1

REPORT INFORMATION
  Report Type: 
  Country: None (occurrence: None)
  Receive Date: 20050203
  Receipt Date: 20050127
  Transmission Date: 20050727
  Serious: Yes (Hospitalization)
  Sender: FDA-Public Use
  Company Number: US-BRISTOL-MYERS SQUIBB COMPANY-12840112

PATIENT
  Age: 72 Year
  Sex: Male
  Weight: 55 kg

DRUGS (3)
  1. CETUXIMAB [Suspect]
     Indication: COLORECTAL CANCER METASTATIC
  2. CAPECITABINE [Suspect]
     Indication: COLORECTAL CANCER METASTATIC
  3. OXALIPLATIN [Suspect]
     Indication: COLORECTAL CANCER METASTATIC

REACTIONS (3)
  - ACUTE SINUSITIS [None]
  - BLOOD BILIRUBIN INCREASED [None]
  - CONVULSION [None]
